FAERS Safety Report 18251505 (Version 1)
Quarter: 2020Q3

REPORT INFORMATION
  Report Type: Spontaneous
  Country: GB (occurrence: GB)
  Receive Date: 20200910
  Receipt Date: 20200910
  Transmission Date: 20201103
  Serious: Yes (Hospitalization)
  Sender: FDA-Public Use
  Company Number: GB-TEVA-2020-GB-1824416

PATIENT
  Age: 94 Year
  Sex: Female

DRUGS (7)
  1. MEMANTINE. [Concomitant]
     Active Substance: MEMANTINE
  2. BISOPROLOL [Concomitant]
     Active Substance: BISOPROLOL
  3. DILTIAZEM. [Suspect]
     Active Substance: DILTIAZEM
     Route: 048
     Dates: end: 20200805
  4. LANSOPRAZOLE. [Concomitant]
     Active Substance: LANSOPRAZOLE
  5. FUROSEMIDE. [Concomitant]
     Active Substance: FUROSEMIDE
  6. LEVOTHYROXINE. [Concomitant]
     Active Substance: LEVOTHYROXINE
  7. APIXABAN [Concomitant]
     Active Substance: APIXABAN

REACTIONS (2)
  - Hypotension [Recovered/Resolved]
  - Oedema peripheral [Recovered/Resolved]
